FAERS Safety Report 25158793 (Version 1)
Quarter: 2025Q2

REPORT INFORMATION
  Report Type: Spontaneous
  Country: EG (occurrence: EG)
  Receive Date: 20250404
  Receipt Date: 20250404
  Transmission Date: 20250717
  Serious: Yes (Death, Hospitalization, Other)
  Sender: SANOFI AVENTIS
  Company Number: EG-SA-2025SA095380

PATIENT
  Age: 14 Month
  Sex: Female
  Weight: 7 kg

DRUGS (1)
  1. MYOZYME [Suspect]
     Active Substance: ALGLUCOSIDASE ALFA

REACTIONS (10)
  - Death [Fatal]
  - Respiratory distress [Unknown]
  - Mitral valve incompetence [Unknown]
  - Aspiration [Unknown]
  - Hypertrophic cardiomyopathy [Unknown]
  - Pneumonia [Unknown]
  - Ventricular hypokinesia [Unknown]
  - Tachycardia [Unknown]
  - Crepitations [Unknown]
  - Left ventricular hypertrophy [Unknown]

NARRATIVE: CASE EVENT DATE: 20250326
